FAERS Safety Report 25584865 (Version 1)
Quarter: 2025Q3

REPORT INFORMATION
  Report Type: Report from Study
  Country: US (occurrence: US)
  Receive Date: 20250721
  Receipt Date: 20250721
  Transmission Date: 20251020
  Serious: Yes (Hospitalization)
  Sender: ACADIA PHARMACEUTICALS
  Company Number: US-ACADIA PHARMACEUTICALS INC.-ACA-2025-PIM-008395

PATIENT
  Sex: Male

DRUGS (13)
  1. NUPLAZID [Suspect]
     Active Substance: PIMAVANSERIN TARTRATE
     Indication: Parkinson^s disease
     Dosage: 10 MILLIGRAM, QD
     Route: 048
     Dates: start: 20240427
  2. TAMSULOSIN [Concomitant]
     Active Substance: TAMSULOSIN
  3. MEMANTINE [Concomitant]
     Active Substance: MEMANTINE
  4. FINASTERIDE [Concomitant]
     Active Substance: FINASTERIDE
  5. HYDROCHLOROTHIAZIDE [Concomitant]
     Active Substance: HYDROCHLOROTHIAZIDE
  6. LISINOPRIL [Concomitant]
     Active Substance: LISINOPRIL
  7. ASPIRIN [Concomitant]
     Active Substance: ASPIRIN
  8. MONTELUKAST [Concomitant]
     Active Substance: MONTELUKAST
  9. FLUTICASONE [Concomitant]
     Active Substance: FLUTICASONE
  10. AZELATINE [Concomitant]
  11. XYZAL [Concomitant]
     Active Substance: LEVOCETIRIZINE DIHYDROCHLORIDE
  12. ATORVASTATIN [Concomitant]
     Active Substance: ATORVASTATIN
  13. LEVETIRACETAM [Concomitant]
     Active Substance: LEVETIRACETAM

REACTIONS (1)
  - Urine odour abnormal [Recovered/Resolved]
